FAERS Safety Report 9460746 (Version 1)
Quarter: 2013Q3

REPORT INFORMATION
  Report Type: Spontaneous
  Country: US (occurrence: US)
  Receive Date: 20130815
  Receipt Date: 20130815
  Transmission Date: 20140515
  Serious: Yes (Hospitalization)
  Sender: FDA-Public Use
  Company Number: US-GLAXOSMITHKLINE-A1037191A

PATIENT
  Sex: Male

DRUGS (4)
  1. AVODART [Suspect]
     Indication: PROSTATOMEGALY
     Dosage: .5MG PER DAY
     Route: 048
  2. METOPROLOL [Concomitant]
  3. LEVOTHYROXINE [Concomitant]
  4. LIPITOR [Concomitant]

REACTIONS (6)
  - Dysphagia [Not Recovered/Not Resolved]
  - Loss of consciousness [Unknown]
  - Carotid artery occlusion [Not Recovered/Not Resolved]
  - Syncope [Unknown]
  - Coronary artery bypass [Recovered/Resolved]
  - Gastrostomy [Recovered/Resolved]
